FAERS Safety Report 6521183-3 (Version None)
Quarter: 2009Q4

REPORT INFORMATION
  Report Type: 
  Country: None (occurrence: None)
  Receive Date: 20091222
  Receipt Date: 20091204
  Transmission Date: 20100525
  Serious: Yes (Hospitalization)
  Sender: FDA-Public Use
  Company Number: 2009003765

PATIENT
  Age: 74 Year
  Sex: Male

DRUGS (1)
  1. TARCEVA [Suspect]
     Indication: SQUAMOUS CELL CARCINOMA
     Dosage: ORAL
     Route: 048

REACTIONS (3)
  - BACTERAEMIA [None]
  - HYPOPHAGIA [None]
  - PNEUMATOSIS INTESTINALIS [None]
